FAERS Safety Report 7642744-4 (Version None)
Quarter: 2011Q3

REPORT INFORMATION
  Report Type: 
  Country: None (occurrence: None)
  Receive Date: 20110728
  Receipt Date: 20110725
  Transmission Date: 20111222
  Serious: Yes (Other)
  Sender: FDA-Public Use
  Company Number: US-AMGEN-USASP2011035000

PATIENT
  Age: 51 Year
  Sex: Female
  Weight: 85.261 kg

DRUGS (1)
  1. NPLATE [Suspect]
     Indication: IDIOPATHIC THROMBOCYTOPENIC PURPURA
     Dosage: 1.5 A?G/KG, UNK
     Dates: start: 20090618, end: 20110610

REACTIONS (2)
  - TREATMENT NONCOMPLIANCE [None]
  - THROMBOCYTOPENIA [None]
